FAERS Safety Report 4461989-8 (Version None)
Quarter: 2004Q3

REPORT INFORMATION
  Report Type: 
  Country: None (occurrence: None)
  Receive Date: 20040924
  Receipt Date: 20040910
  Transmission Date: 20050211
  Serious: Yes (Other)
  Sender: FDA-Public Use
  Company Number: A0432779A

PATIENT
  Age: 44 Year
  Sex: Female

DRUGS (1)
  1. NICORETTE [Suspect]
     Indication: EX-SMOKER
     Dosage: 2MG/ FIFTEEN TIMES PER DAY/TRA
     Dates: start: 20020101

REACTIONS (7)
  - AGEUSIA [None]
  - APHASIA [None]
  - DRUG DEPENDENCE [None]
  - GINGIVAL INFECTION [None]
  - OSTEOPOROSIS [None]
  - PHARYNGEAL ERYTHEMA [None]
  - PYREXIA [None]
